FAERS Safety Report 25435791 (Version 1)
Quarter: 2025Q2

REPORT INFORMATION
  Report Type: Spontaneous
  Country: CL (occurrence: CL)
  Receive Date: 20250613
  Receipt Date: 20250613
  Transmission Date: 20250717
  Serious: Yes (Hospitalization)
  Sender: GE HEALTHCARE
  Company Number: CL-GE HEALTHCARE-2025CSU007640

PATIENT
  Sex: Female
  Weight: 45 kg

DRUGS (2)
  1. CLARISCAN [Suspect]
     Active Substance: GADOTERATE MEGLUMINE
     Indication: Diagnostic procedure
     Route: 065
     Dates: start: 20250603, end: 20250603
  2. CLARISCAN [Suspect]
     Active Substance: GADOTERATE MEGLUMINE
     Route: 065
     Dates: start: 20250603, end: 20250603

REACTIONS (5)
  - Sinus tachycardia [Recovering/Resolving]
  - Supraventricular tachycardia [Recovering/Resolving]
  - Cyanosis [Recovering/Resolving]
  - Erythema [Recovering/Resolving]
  - Feeling hot [Recovering/Resolving]

NARRATIVE: CASE EVENT DATE: 20250603
